FAERS Safety Report 7685332-6 (Version None)
Quarter: 2011Q3

REPORT INFORMATION
  Report Type: 
  Country: None (occurrence: None)
  Receive Date: 20110816
  Receipt Date: 20110808
  Transmission Date: 20111222
  Serious: Yes (Hospitalization, Other)
  Sender: FDA-Public Use
  Company Number: US-BAYER-201037992NA

PATIENT
  Age: 21 Year
  Sex: Female
  Weight: 101 kg

DRUGS (15)
  1. PROZAC [Concomitant]
  2. ALPRAZOLAM [Concomitant]
     Dosage: 0.5 MG, UNK
     Dates: start: 20081101
  3. YAZ [Suspect]
  4. FERROUS SULFATE TAB [Concomitant]
     Dosage: 325 MG, UNK
     Dates: start: 20080901
  5. PRE-NATAL VITAMINS [Concomitant]
  6. YAZ [Suspect]
     Indication: ORAL CONTRACEPTION
     Dosage: UNK
     Route: 048
     Dates: start: 20080901, end: 20090201
  7. YAZ [Suspect]
     Indication: PREMENSTRUAL SYNDROME
  8. CIPROFLOXACIN [Concomitant]
     Dosage: 500 UNK, UNK
     Dates: start: 20080901
  9. MEPROZINE [Concomitant]
     Dosage: UNK
     Dates: start: 20080901
  10. ACYCLOVIR [Concomitant]
     Dosage: 200 MG, UNK
     Dates: start: 20081001
  11. HYDROCODONE BITARTRATE AND ACETAMINOPHEN [Concomitant]
     Dosage: UNK
     Dates: start: 20081001
  12. XANAX [Concomitant]
  13. IBUPROFEN [Concomitant]
     Dosage: 800 MG, UNK
     Dates: start: 20080901
  14. FLUOXETINE [Concomitant]
     Dosage: 20 MG, UNK
     Dates: start: 20081101
  15. ADVIL LIQUI-GELS [Concomitant]

REACTIONS (2)
  - CHOLECYSTITIS [None]
  - PANCREATITIS [None]
